FAERS Safety Report 21836621 (Version 1)
Quarter: 2023Q1

REPORT INFORMATION
  Report Type: Spontaneous
  Country: US (occurrence: US)
  Receive Date: 20230109
  Receipt Date: 20230109
  Transmission Date: 20230417
  Serious: No
  Sender: FDA-Public Use
  Company Number: US-TERSERA THERAPEUTICS LLC-2022TRS005498

PATIENT

DRUGS (3)
  1. PRIALT [Suspect]
     Active Substance: ZICONOTIDE ACETATE
     Indication: Spinal pain
     Dosage: UNK
     Route: 037
  2. MORPHINE [Concomitant]
     Active Substance: MORPHINE
     Indication: Spinal pain
     Dosage: UNK
     Route: 037
  3. BUPIVACAINE [Concomitant]
     Active Substance: BUPIVACAINE
     Indication: Spinal pain
     Dosage: UNK
     Route: 037

REACTIONS (3)
  - Hypoaesthesia [Not Recovered/Not Resolved]
  - Gait disturbance [Not Recovered/Not Resolved]
  - Off label use [Unknown]

NARRATIVE: CASE EVENT DATE: 20221001
